FAERS Safety Report 9067379 (Version 2)
Quarter: 2013Q2

REPORT INFORMATION
  Report Type: Other
  Country: DE (occurrence: DE)
  Receive Date: 20130206
  Receipt Date: 20130508
  Transmission Date: 20140414
  Serious: Yes (Hospitalization)
  Sender: FDA-Public Use
  Company Number: DE-WATSON-2013-01281

PATIENT
  Age: 22 Year
  Sex: Male
  Weight: 103 kg

DRUGS (3)
  1. RISPERIDONE (UNKNOWN) [Suspect]
     Indication: PSYCHOTIC DISORDER
     Dosage: 4 MG, DAILY
     Route: 048
     Dates: start: 20121121, end: 20121212
  2. CLOZAPINE [Concomitant]
     Indication: PSYCHOTIC DISORDER
     Dosage: 12.5 MG, DAILY
     Route: 048
     Dates: start: 20121214
  3. SERTRALINE [Concomitant]
     Indication: DEPRESSIVE SYMPTOM
     Dosage: 100 MG, DAILY
     Route: 048
     Dates: start: 20121128

REACTIONS (1)
  - Transient ischaemic attack [Recovered/Resolved]
